FAERS Safety Report 6442430-2 (Version None)
Quarter: 2009Q4

REPORT INFORMATION
  Report Type: 
  Country: None (occurrence: None)
  Receive Date: 20091112
  Receipt Date: 20091027
  Transmission Date: 20100525
  Serious: Yes (Other)
  Sender: FDA-Public Use
  Company Number: 08-AUR-05379

PATIENT
  Age: 72 Year
  Sex: Female

DRUGS (7)
  1. SIMVASTATIN [Suspect]
     Indication: BLOOD CHOLESTEROL INCREASED
     Dosage: 80MG - ORAL
     Route: 048
     Dates: start: 20060101, end: 20081023
  2. ALLOPURINOL [Suspect]
     Indication: GOUT
     Dosage: ORAL
     Route: 048
     Dates: start: 20081006, end: 20081023
  3. BISOPROLOL [Concomitant]
  4. ENALAPRIL MALEATE [Concomitant]
  5. EZETIMIBE [Concomitant]
  6. INSULIN [Concomitant]
  7. ISOSORBIDE MONONITRATE [Concomitant]

REACTIONS (2)
  - DRUG INTERACTION [None]
  - RHABDOMYOLYSIS [None]
